FAERS Safety Report 5448651-X (Version None)
Quarter: 2007Q3

REPORT INFORMATION
  Report Type: 
  Country: None (occurrence: None)
  Receive Date: 20070907
  Receipt Date: 20070907
  Transmission Date: 20080115
  Serious: Yes (Other)
  Sender: FDA-Public Use
  Company Number: None

PATIENT
  Sex: Female

DRUGS (1)
  1. HALOPERIDOL [Suspect]
     Dates: start: 20070706, end: 20070706

REACTIONS (3)
  - DYSTONIA [None]
  - EYE DISORDER [None]
  - MUSCLE RIGIDITY [None]
